FAERS Safety Report 5016394-2 (Version None)
Quarter: 2006Q2

REPORT INFORMATION
  Report Type: 
  Country: None (occurrence: None)
  Receive Date: 20060602
  Receipt Date: 20060524
  Transmission Date: 20061013
  Serious: Yes (Hospitalization, Other)
  Sender: FDA-Public Use
  Company Number: GB-JNJFOC-20060505436

PATIENT
  Sex: Female
  Weight: 75 kg

DRUGS (7)
  1. REMICADE [Suspect]
     Route: 042
  2. METHOTREXATE [Concomitant]
     Route: 065
  3. AMITRIPTYLINE HCL [Concomitant]
     Route: 065
  4. FOLIC ACID [Concomitant]
     Route: 065
  5. METHOCARBAMOL [Concomitant]
     Route: 065
  6. RELIFLEX [Concomitant]
     Route: 065
  7. TEMAZEPAM [Concomitant]
     Route: 065

REACTIONS (1)
  - DIVERTICULITIS [None]
